FAERS Safety Report 20772669 (Version 1)
Quarter: 2022Q2

REPORT INFORMATION
  Report Type: Spontaneous
  Country: US (occurrence: US)
  Receive Date: 20220502
  Receipt Date: 20220502
  Transmission Date: 20220721
  Serious: Yes (Other)
  Sender: FDA-Public Use
  Company Number: US-UCBSA-2022023850

PATIENT
  Sex: Male

DRUGS (4)
  1. KEPPRA XR [Suspect]
     Active Substance: LEVETIRACETAM
     Indication: Seizure
     Dosage: 500 MILLIGRAM, 2X/DAY (BID)
  2. CORTISONE [Concomitant]
     Active Substance: CORTISONE
     Indication: Back pain
  3. LIDOCAINE [Concomitant]
     Active Substance: LIDOCAINE
     Indication: Back pain
  4. NARCAN [Concomitant]
     Active Substance: NALOXONE HYDROCHLORIDE
     Indication: Back pain

REACTIONS (2)
  - Back pain [Unknown]
  - Incorrect dose administered [Unknown]
